FAERS Safety Report 4646371-2 (Version None)
Quarter: 2005Q2

REPORT INFORMATION
  Report Type: 
  Country: None (occurrence: None)
  Receive Date: 20050422
  Receipt Date: 20050412
  Transmission Date: 20051028
  Serious: Yes (Hospitalization)
  Sender: FDA-Public Use
  Company Number: 04P-167-0257790-00

PATIENT
  Age: 70 Year
  Sex: Female

DRUGS (18)
  1. HUMIRA [Suspect]
     Indication: RHEUMATOID ARTHRITIS
     Dosage: 40 MG, 1 IN 2 WK, SUBCUTANEOUS
     Route: 058
     Dates: start: 20030721
  2. PENICILLAMINE [Concomitant]
  3. GOLD [Concomitant]
  4. SULFASALAZINE [Concomitant]
  5. METHOTREXATE [Concomitant]
  6. LEFLUNOMIDE [Concomitant]
  7. ALENDRONATE SODIUM [Concomitant]
  8. CALCICHEW D3 FORTE [Concomitant]
  9. TYLEX [Concomitant]
  10. ARTHROTEC [Concomitant]
  11. ISONIAZID [Concomitant]
  12. PYRIDOXINE HCL [Concomitant]
  13. VENLAFAXINE HCL [Concomitant]
  14. FLU VACCINE [Concomitant]
  15. TRIAMCINOLONE ACETONIDE [Concomitant]
  16. CELECOXIB [Concomitant]
  17. CIPRALEX [Concomitant]
  18. CLOBETASOL PROPIONATE [Concomitant]

REACTIONS (4)
  - ANKLE FRACTURE [None]
  - FALL [None]
  - FIBULA FRACTURE [None]
  - FOOT FRACTURE [None]
